FAERS Safety Report 12518335 (Version 1)
Quarter: 2016Q2

REPORT INFORMATION
  Report Type: Spontaneous
  Country: GB (occurrence: GB)
  Receive Date: 20160630
  Receipt Date: 20160630
  Transmission Date: 20160815
  Serious: Yes (Death)
  Sender: FDA-Public Use
  Company Number: GB-B.I. PHARMACEUTICALS,INC./RIDGEFIELD-2016-BI-41974UK

PATIENT
  Age: 84 Year
  Sex: Female
  Weight: 99.9 kg

DRUGS (1)
  1. PRADAXA [Suspect]
     Active Substance: DABIGATRAN ETEXILATE MESYLATE
     Indication: ATRIAL FIBRILLATION
     Dosage: 220 MG
     Route: 048
     Dates: start: 20151110, end: 20160603

REACTIONS (3)
  - Rectal haemorrhage [Unknown]
  - Upper gastrointestinal haemorrhage [Fatal]
  - Melaena [Unknown]

NARRATIVE: CASE EVENT DATE: 20160603
